FAERS Safety Report 9676156 (Version 1)
Quarter: 2013Q4

REPORT INFORMATION
  Report Type: Spontaneous
  Country: US (occurrence: None)
  Receive Date: 20131105
  Receipt Date: 20131105
  Transmission Date: 20140711
  Serious: Yes (Hospitalization)
  Sender: FDA-Public Use
  Company Number: DAV-AE-MTX-13-62

PATIENT
  Age: 56 Year
  Sex: Female

DRUGS (5)
  1. METHOTREXATE [Suspect]
     Indication: RHEUMATOID ARTHRITIS
  2. LEFLUNOMIDE [Concomitant]
  3. ETANERCEPT [Concomitant]
  4. CORTICOSTEROIDS [Concomitant]
  5. HYDROXYCHLOROQUINE [Concomitant]

REACTIONS (11)
  - Tuberculosis [None]
  - Pneumothorax [None]
  - Tracheal disorder [None]
  - Dyspnoea [None]
  - Cough [None]
  - Stridor [None]
  - Biopsy trachea abnormal [None]
  - Tracheostomy [None]
  - Chondritis [None]
  - Tracheal inflammation [None]
  - Drug intolerance [None]
